FAERS Safety Report 6315023-5 (Version None)
Quarter: 2009Q3

REPORT INFORMATION
  Report Type: 
  Country: None (occurrence: None)
  Receive Date: 20090819
  Receipt Date: 20090810
  Transmission Date: 20100115
  Serious: Yes (Other)
  Sender: FDA-Public Use
  Company Number: US-ABBOTT-09P-163-0590173-00

PATIENT
  Sex: Female
  Weight: 81.266 kg

DRUGS (3)
  1. HUMIRA [Suspect]
     Indication: RHEUMATOID ARTHRITIS
     Route: 048
     Dates: start: 20040101, end: 20080829
  2. HUMIRA [Suspect]
     Route: 058
     Dates: start: 20090725
  3. SYNTHROID [Concomitant]
     Indication: HYPOTHYROIDISM
     Route: 048

REACTIONS (7)
  - DRUG DOSE OMISSION [None]
  - LIMB CRUSHING INJURY [None]
  - MITRAL VALVE PROLAPSE [None]
  - PAIN [None]
  - PALPITATIONS [None]
  - SOFT TISSUE NECROSIS [None]
  - SWELLING [None]
